FAERS Safety Report 9290722 (Version 1)
Quarter: 2013Q2

REPORT INFORMATION
  Report Type: Spontaneous
  Country: AU (occurrence: AU)
  Receive Date: 20130515
  Receipt Date: 20130515
  Transmission Date: 20140414
  Serious: Yes (Other)
  Sender: FDA-Public Use
  Company Number: PHHY2013AU047403

PATIENT
  Age: 57 Year
  Sex: Male

DRUGS (4)
  1. DICLOFENAC [Suspect]
     Dosage: UNK UKN, UNK
  2. PREDNISONE [Suspect]
     Dosage: UNK UKN, UNK
  3. ACTEMRA [Suspect]
     Dosage: UNK UKN, UNK
  4. ARAVA [Suspect]
     Dosage: UNK UKN, UNK

REACTIONS (1)
  - Ligament rupture [Unknown]
